FAERS Safety Report 9539472 (Version 3)
Quarter: 2014Q1

REPORT INFORMATION
  Report Type: Report from Study
  Country: FR (occurrence: FR)
  Receive Date: 20130920
  Receipt Date: 20140203
  Transmission Date: 20141002
  Serious: Yes (Other)
  Sender: FDA-Public Use
  Company Number: FR-SANOFI-AVENTIS-2013SA091405

PATIENT
  Age: 56 Year
  Sex: Male

DRUGS (2)
  1. CAMPATH [Suspect]
     Indication: CHRONIC LYMPHOCYTIC LEUKAEMIA
     Dosage: REFRACTORY LLC B WITH 17P DELETION WAS DIAGNOSED IN 2006
     Route: 065
     Dates: start: 20130319, end: 20130607
  2. CAMPATH [Suspect]
     Indication: CHRONIC LYMPHOCYTIC LEUKAEMIA
     Dosage: REFRACTORY LLC B WITH 17P DELETION WAS DIAGNOSED IN 2006
     Route: 065
     Dates: start: 20130319, end: 20130607

REACTIONS (1)
  - Drug ineffective [Unknown]
